FAERS Safety Report 23336231 (Version 1)
Quarter: 2023Q4

REPORT INFORMATION
  Report Type: Other
  Country: US (occurrence: None)
  Receive Date: 20231225
  Receipt Date: 20231225
  Transmission Date: 20240110
  Serious: Yes (Hospitalization)
  Sender: FDA-Public Use
  Company Number: US-ROCHE-2899340

PATIENT
  Age: 28 Year
  Sex: Male

DRUGS (6)
  1. PULMOZYME [Suspect]
     Active Substance: DORNASE ALFA
     Indication: Scoliosis
     Dosage: AT BEDTIME
     Route: 065
  2. PULMOZYME [Suspect]
     Active Substance: DORNASE ALFA
     Indication: Chronic respiratory failure
     Dosage: NEBULIZE THE CONTENTS OF 1 VIAL(S) EVERY NIGHT AT BEDTIME ?AMPUL
     Route: 065
  3. PULMOZYME [Suspect]
     Active Substance: DORNASE ALFA
     Indication: Dependence on respirator
  4. PULMOZYME [Suspect]
     Active Substance: DORNASE ALFA
     Indication: Hypercapnia
  5. PULMOZYME [Suspect]
     Active Substance: DORNASE ALFA
     Indication: Scoliosis
  6. PULMOZYME [Suspect]
     Active Substance: DORNASE ALFA
     Indication: Mechanical ventilation

REACTIONS (2)
  - Haemorrhage [Unknown]
  - Off label use [Unknown]
